FAERS Safety Report 25351705 (Version 1)
Quarter: 2025Q2

REPORT INFORMATION
  Report Type: Spontaneous
  Country: PT (occurrence: PT)
  Receive Date: 20250523
  Receipt Date: 20250523
  Transmission Date: 20250717
  Serious: Yes (Life-Threatening, Hospitalization, Other)
  Sender: AUROBINDO
  Company Number: PT-SUN PHARMACEUTICAL INDUSTRIES LTD-2023R1-398585

PATIENT
  Age: 45 Year
  Sex: Female

DRUGS (1)
  1. ALLOPURINOL [Suspect]
     Active Substance: ALLOPURINOL
     Indication: Hyperuricaemia
     Dosage: 300 MILLIGRAM, DAILY
     Route: 065

REACTIONS (4)
  - Toxic epidermal necrolysis [Recovered/Resolved]
  - Stevens-Johnson syndrome [Recovered/Resolved]
  - SJS-TEN overlap [Recovering/Resolving]
  - Off label use [Unknown]
